FAERS Safety Report 22020333 (Version 1)
Quarter: 2023Q1

REPORT INFORMATION
  Report Type: Spontaneous
  Country: CN (occurrence: None)
  Receive Date: 20230222
  Receipt Date: 20230222
  Transmission Date: 20230418
  Serious: Yes (Hospitalization)
  Sender: FDA-Public Use
  Company Number: CN-ROCHE-3290066

PATIENT
  Age: 24 Year
  Sex: Female

DRUGS (13)
  1. VALGANCICLOVIR [Suspect]
     Active Substance: VALGANCICLOVIR
     Indication: Product used for unknown indication
     Dosage: 450 MILLIGRAM (MG), TWICE DAILY
     Route: 065
     Dates: start: 20220815, end: 20220904
  2. TACROLIMUS [Suspect]
     Active Substance: TACROLIMUS
     Indication: Product used for unknown indication
     Dosage: 11 MG IN THE MORNING
     Route: 065
     Dates: end: 20220909
  3. ALDACTONE [Concomitant]
     Active Substance: SPIRONOLACTONE
  4. BACTRIM [Concomitant]
     Active Substance: SULFAMETHOXAZOLE\TRIMETHOPRIM
  5. CALCIUM\CHOLECALCIFEROL [Concomitant]
     Active Substance: CALCIUM\CHOLECALCIFEROL
  6. CELLCEPT [Concomitant]
     Active Substance: MYCOPHENOLATE MOFETIL
  7. INDERAL [Concomitant]
     Active Substance: PROPRANOLOL HYDROCHLORIDE
  8. NADROPARIN [Concomitant]
     Active Substance: NADROPARIN
  9. ESOMEPRAZOLE [Concomitant]
     Active Substance: ESOMEPRAZOLE
  10. NEUPOGEN [Concomitant]
     Active Substance: FILGRASTIM
     Dates: start: 20220909, end: 20220909
  11. NEUPOGEN [Concomitant]
     Active Substance: FILGRASTIM
     Dates: start: 20220906, end: 20220906
  12. PREDNISONE [Concomitant]
     Active Substance: PREDNISONE
  13. TORSEMIDE [Concomitant]
     Active Substance: TORSEMIDE

REACTIONS (2)
  - Agranulocytosis [Recovering/Resolving]
  - Liver function test increased [Not Recovered/Not Resolved]

NARRATIVE: CASE EVENT DATE: 20220906
